FAERS Safety Report 7764330-8 (Version None)
Quarter: 2011Q3

REPORT INFORMATION
  Report Type: 
  Country: None (occurrence: None)
  Receive Date: 20110921
  Receipt Date: 20110916
  Transmission Date: 20111222
  Serious: Yes (Other)
  Sender: FDA-Public Use
  Company Number: PT-BRISTOL-MYERS SQUIBB COMPANY-16026924

PATIENT
  Age: 74 Year
  Sex: Female

DRUGS (1)
  1. DASATINIB [Suspect]
     Dates: start: 20090601

REACTIONS (5)
  - RESPIRATORY TRACT INFECTION [None]
  - PERICARDIAL EFFUSION [None]
  - ASCITES [None]
  - POLYSEROSITIS [None]
  - PLEURAL EFFUSION [None]
